FAERS Safety Report 24748800 (Version 1)
Quarter: 2024Q4

REPORT INFORMATION
  Report Type: Spontaneous
  Country: JP (occurrence: JP)
  Receive Date: 20241218
  Receipt Date: 20241218
  Transmission Date: 20250115
  Serious: Yes (Other)
  Sender: ROCHE
  Company Number: JP-CHUGAI-2024043239

PATIENT
  Age: 2 Year
  Sex: Female

DRUGS (1)
  1. TAMIFLU [Suspect]
     Active Substance: OSELTAMIVIR PHOSPHATE
     Indication: Influenza
     Dosage: UNK
     Route: 050
     Dates: start: 20241206, end: 20241207

REACTIONS (2)
  - Haematuria [Recovered/Resolved]
  - Urinary occult blood [Not Recovered/Not Resolved]

NARRATIVE: CASE EVENT DATE: 20241207
